FAERS Safety Report 11330728 (Version 1)
Quarter: 2015Q3

REPORT INFORMATION
  Report Type: Spontaneous
  Country: US (occurrence: None)
  Receive Date: 20150730
  Receipt Date: 20150730
  Transmission Date: 20151125
  Serious: Yes (Disabling)
  Sender: FDA-Public Use
  Company Number: None

PATIENT
  Age: 67 Year
  Sex: Female
  Weight: 75.75 kg

DRUGS (19)
  1. VITAMIN D [Concomitant]
     Active Substance: CHOLECALCIFEROL
  2. POLICOSANOL [Concomitant]
  3. MELATONIN [Concomitant]
     Active Substance: MELATONIN
  4. TOPROL XL [Concomitant]
     Active Substance: METOPROLOL SUCCINATE
  5. COZAAR [Concomitant]
     Active Substance: LOSARTAN POTASSIUM
  6. PEPSID [Concomitant]
  7. LIPITOR [Suspect]
     Active Substance: ATORVASTATIN CALCIUM
     Indication: HIGH DENSITY LIPOPROTEIN INCREASED
     Route: 048
  8. METFORMIN [Concomitant]
     Active Substance: METFORMIN HYDROCHLORIDE
  9. OSPENA [Concomitant]
  10. CHROMIUN [Concomitant]
  11. LIPITOR [Suspect]
     Active Substance: ATORVASTATIN CALCIUM
     Indication: BLOOD CHOLESTEROL INCREASED
     Route: 048
  12. SYNTHROID [Concomitant]
     Active Substance: LEVOTHYROXINE SODIUM
  13. LIPITOR [Suspect]
     Active Substance: ATORVASTATIN CALCIUM
     Indication: LOW DENSITY LIPOPROTEIN INCREASED
     Route: 048
  14. BIOTIN [Concomitant]
     Active Substance: BIOTIN
  15. VICTOZA [Concomitant]
     Active Substance: LIRAGLUTIDE
  16. ALDACTONE [Concomitant]
     Active Substance: SPIRONOLACTONE
  17. ASA [Concomitant]
     Active Substance: ASPIRIN
  18. COQ 10 [Concomitant]
     Active Substance: UBIDECARENONE
  19. FLAXSEED [Concomitant]
     Active Substance: FLAX SEED

REACTIONS (5)
  - Meniscus injury [None]
  - Diabetes mellitus inadequate control [None]
  - Rotator cuff syndrome [None]
  - Coronary artery bypass [None]
  - Dawn phenomenon [None]

NARRATIVE: CASE EVENT DATE: 20150720
